FAERS Safety Report 20881976 (Version 1)
Quarter: 2022Q2

REPORT INFORMATION
  Report Type: Other
  Country: None (occurrence: US)
  Receive Date: 20220527
  Receipt Date: 20220527
  Transmission Date: 20220721
  Serious: Yes (Other)
  Sender: FDA-Public Use
  Company Number: US-Yung Shin Pharmaceutical Ind.  Co., Ltd.-2129252

PATIENT
  Age: 8 Year
  Sex: Female

DRUGS (5)
  1. AZITHROMYCIN DIHYDRATE [Suspect]
     Active Substance: AZITHROMYCIN DIHYDRATE
     Route: 042
  2. FUROSEMIDE [Concomitant]
     Active Substance: FUROSEMIDE
  3. Milrinone (infusion) [Concomitant]
  4. EPINEPHRINE [Concomitant]
     Active Substance: EPINEPHRINE
  5. Nitroprusside (started on day 2 of ICU) [Concomitant]

REACTIONS (2)
  - Hypotension [Recovered/Resolved]
  - Cardiac arrest [Recovered/Resolved]
